FAERS Safety Report 19712024 (Version 5)
Quarter: 2022Q2

REPORT INFORMATION
  Report Type: Report from Study
  Country: JP (occurrence: JP)
  Receive Date: 20210817
  Receipt Date: 20220609
  Transmission Date: 20220721
  Serious: Yes (Life-Threatening, Other)
  Sender: FDA-Public Use
  Company Number: JP-KYOWAKIRIN-2021AKK001524

PATIENT

DRUGS (30)
  1. MOGAMULIZUMAB [Suspect]
     Active Substance: MOGAMULIZUMAB
     Indication: Adult T-cell lymphoma/leukaemia
     Dosage: 1 MG/KG
     Route: 041
     Dates: start: 20180918, end: 20180918
  2. MOGAMULIZUMAB [Suspect]
     Active Substance: MOGAMULIZUMAB
     Dosage: 1 MG/KG
     Route: 041
     Dates: start: 20181025, end: 20181025
  3. DEXCHLORPHENIRAMINE MALEATE [Concomitant]
     Active Substance: DEXCHLORPHENIRAMINE MALEATE
     Indication: Prophylaxis
     Dosage: UNK
     Route: 065
     Dates: start: 20180918, end: 20180918
  4. DEXCHLORPHENIRAMINE MALEATE [Concomitant]
     Active Substance: DEXCHLORPHENIRAMINE MALEATE
     Dosage: UNK
     Route: 065
     Dates: start: 20181025, end: 20181025
  5. DEXAMETHASONE SODIUM PHOSPHATE [Concomitant]
     Active Substance: DEXAMETHASONE SODIUM PHOSPHATE
     Indication: Prophylaxis
     Dosage: 6.6 MG
     Route: 065
     Dates: start: 20180918, end: 20180918
  6. DEXAMETHASONE SODIUM PHOSPHATE [Concomitant]
     Active Substance: DEXAMETHASONE SODIUM PHOSPHATE
     Dosage: 6.6 MG
     Route: 065
     Dates: start: 20181025, end: 20181025
  7. ISCOTIN [Concomitant]
     Active Substance: ISONIAZID
     Indication: Infection prophylaxis
     Dosage: UNK
     Route: 048
     Dates: start: 20180915, end: 20181104
  8. SULFAMETHOXAZOLE\TRIMETHOPRIM [Concomitant]
     Active Substance: SULFAMETHOXAZOLE\TRIMETHOPRIM
     Indication: Infection prophylaxis
     Dosage: UNK
     Route: 048
     Dates: start: 20180915, end: 20181104
  9. FLUCONAZOLE [Concomitant]
     Active Substance: FLUCONAZOLE
     Indication: Infection prophylaxis
     Dosage: UNK
     Route: 048
     Dates: start: 20181013, end: 20181104
  10. LOXOPROFEN [Concomitant]
     Active Substance: LOXOPROFEN
     Indication: Infusion related reaction
     Dosage: UNK
     Route: 048
     Dates: start: 20180930, end: 20181025
  11. MAGNESIUM OXIDE [Concomitant]
     Active Substance: MAGNESIUM OXIDE
     Indication: Constipation
     Dosage: UNK
     Route: 048
     Dates: start: 20180923, end: 20181029
  12. XYZAL [Concomitant]
     Active Substance: LEVOCETIRIZINE DIHYDROCHLORIDE
     Indication: Prophylaxis
     Dosage: UNK
     Route: 048
     Dates: start: 20180918, end: 20181105
  13. AZOSEMIDE [Concomitant]
     Active Substance: AZOSEMIDE
     Dosage: UNK
     Route: 048
     Dates: start: 20180928, end: 20181113
  14. MIYA-BM [Concomitant]
     Active Substance: CLOSTRIDIUM BUTYRICUM SPORES STRAIN M-55
     Indication: Prophylaxis
     Dosage: UNK
     Route: 048
     Dates: start: 20180923, end: 20181104
  15. UBIDECARENONE [Concomitant]
     Active Substance: UBIDECARENONE
     Indication: Prophylaxis
     Dosage: UNK
     Route: 048
     Dates: end: 20181104
  16. LOPERAMIDE [Concomitant]
     Active Substance: LOPERAMIDE
     Indication: Diarrhoea
     Dosage: UNK
     Route: 048
     Dates: start: 20181006, end: 20181006
  17. RABEPRAZOLE SODIUM [Concomitant]
     Active Substance: RABEPRAZOLE SODIUM
     Indication: Prophylaxis
     Dosage: UNK
     Route: 048
     Dates: start: 20181011, end: 20181113
  18. PREDONINE [Concomitant]
     Active Substance: PREDNISOLONE
     Indication: Prophylaxis
     Dosage: UNK
     Route: 048
     Dates: start: 20180923, end: 20180925
  19. METILDIGOXIN [Concomitant]
     Active Substance: METILDIGOXIN
     Dosage: UNK
     Route: 048
     Dates: start: 20180928, end: 20181113
  20. EDOXABAN TOSYLATE [Concomitant]
     Active Substance: EDOXABAN TOSYLATE
     Indication: Prophylaxis
     Dosage: UNK
     Route: 048
     Dates: start: 20181013, end: 20181113
  21. CALONAL [Concomitant]
     Active Substance: ACETAMINOPHEN
     Indication: Infusion related reaction
     Dosage: UNK
     Route: 048
     Dates: start: 20180929, end: 20181009
  22. SENNOSIDES A AND B [Concomitant]
     Active Substance: SENNOSIDES A AND B
     Indication: Constipation
     Dosage: UNK
     Route: 048
     Dates: start: 20180923, end: 20181029
  23. FEBUXOSTAT [Concomitant]
     Active Substance: FEBUXOSTAT
     Indication: Prophylaxis
     Dosage: UNK
     Route: 048
     Dates: end: 20181113
  24. FUROSEMIDE [Concomitant]
     Active Substance: FUROSEMIDE
     Indication: Prophylaxis
     Dosage: UNK
     Route: 048
     Dates: start: 20181011, end: 20181113
  25. FILGRASTIM [Concomitant]
     Active Substance: FILGRASTIM
     Indication: Neutrophil count decreased
     Dosage: UNK
     Route: 065
     Dates: start: 20181004, end: 20181008
  26. BIAPENEM [Concomitant]
     Active Substance: BIAPENEM
     Indication: Infusion related reaction
     Dosage: UNK
     Route: 065
     Dates: start: 20180929, end: 20181012
  27. SOLU-CORTEF [Concomitant]
     Active Substance: HYDROCORTISONE SODIUM SUCCINATE
     Indication: Infusion related reaction
     Dosage: UNK
     Route: 065
     Dates: start: 20181002, end: 20181006
  28. MICAFUNGIN SODIUM [Concomitant]
     Active Substance: MICAFUNGIN SODIUM
     Indication: Infusion related reaction
     Dosage: UNK
     Route: 065
     Dates: start: 20181008, end: 20181012
  29. FUROSEMIDE [Concomitant]
     Active Substance: FUROSEMIDE
     Indication: Prophylaxis
     Dosage: UNK
     Route: 065
     Dates: start: 20180914, end: 20181026
  30. HEPARIN SODIUM [Concomitant]
     Active Substance: HEPARIN SODIUM
     Indication: Prophylaxis
     Dosage: UNK
     Route: 065
     Dates: end: 20181010

REACTIONS (6)
  - Pancreatic carcinoma [Unknown]
  - Infusion related reaction [Recovered/Resolved]
  - Neutrophil count decreased [Recovering/Resolving]
  - Constipation [Recovered/Resolved]
  - Diarrhoea [Recovered/Resolved]
  - Pyrexia [Recovered/Resolved]

NARRATIVE: CASE EVENT DATE: 20180923
